FAERS Safety Report 19849665 (Version 1)
Quarter: 2021Q3

REPORT INFORMATION
  Report Type: Report from Study
  Country: US (occurrence: US)
  Receive Date: 20210917
  Receipt Date: 20210917
  Transmission Date: 20211014
  Serious: Yes (Other)
  Sender: FDA-Public Use
  Company Number: US-BRISTOL-MYERS SQUIBB COMPANY-BMS-2021-090833

PATIENT
  Age: 55 Year
  Sex: Male
  Weight: 108.86 kg

DRUGS (2)
  1. NIVOLUMAB [Suspect]
     Active Substance: NIVOLUMAB
     Indication: MALIGNANT MELANOMA STAGE III
     Dosage: UNK (ONE TIME)
     Route: 042
     Dates: start: 202102, end: 202102
  2. IPILIMUMAB [Suspect]
     Active Substance: IPILIMUMAB
     Indication: MALIGNANT MELANOMA STAGE III
     Dosage: UNK (ONE TIME)
     Route: 042
     Dates: start: 202102, end: 202102

REACTIONS (10)
  - Rash [Unknown]
  - Diarrhoea [Unknown]
  - Psoriatic arthropathy [Unknown]
  - Colitis [Unknown]
  - Neurodermatitis [Unknown]
  - Vomiting [Unknown]
  - Scar [Unknown]
  - Cardiac disorder [Unknown]
  - Lymphadenopathy [Unknown]
  - Thyroid disorder [Unknown]

NARRATIVE: CASE EVENT DATE: 2021
